FAERS Safety Report 13586955 (Version 1)
Quarter: 2017Q2

REPORT INFORMATION
  Report Type: Spontaneous
  Country: US (occurrence: US)
  Receive Date: 20170526
  Receipt Date: 20170526
  Transmission Date: 20170830
  Serious: Yes (Hospitalization)
  Sender: FDA-Public Use
  Company Number: US-ROCHE-1555936

PATIENT
  Sex: Female

DRUGS (1)
  1. VALCYTE [Suspect]
     Active Substance: VALGANCICLOVIR HYDROCHLORIDE
     Indication: LUNG TRANSPLANT
     Route: 048
     Dates: start: 201502

REACTIONS (4)
  - Diarrhoea [Unknown]
  - Vomiting [Unknown]
  - Product container issue [Unknown]
  - Nausea [Unknown]
